FAERS Safety Report 11977103 (Version 1)
Quarter: 2016Q1

REPORT INFORMATION
  Report Type: Spontaneous
  Country: US (occurrence: US)
  Receive Date: 20160129
  Receipt Date: 20160129
  Transmission Date: 20160526
  Serious: No
  Sender: FDA-Public Use
  Company Number: US-PERRIGO-15US012666

PATIENT
  Age: 11 Year
  Sex: Female
  Weight: 40.82 kg

DRUGS (2)
  1. IBUPROFEN 200MG-DIPHENHYDRAMINE CITRATE 38 MG 8K7 [Suspect]
     Active Substance: DIPHENHYDRAMINE HYDROCHLORIDE\IBUPROFEN
     Indication: PAIN IN EXTREMITY
  2. IBUPROFEN 200MG-DIPHENHYDRAMINE CITRATE 38 MG 8K7 [Suspect]
     Active Substance: DIPHENHYDRAMINE HYDROCHLORIDE\IBUPROFEN
     Indication: INSOMNIA
     Dosage: QUARTER TABLET, SINGLE
     Route: 048
     Dates: start: 20151129, end: 20151129

REACTIONS (7)
  - Wrong technique in product usage process [Recovered/Resolved]
  - Ocular hyperaemia [Unknown]
  - Insomnia [Recovered/Resolved]
  - Drug administered to patient of inappropriate age [Recovered/Resolved]
  - Palpitations [Recovering/Resolving]
  - Hallucination [Unknown]
  - Dizziness [Recovered/Resolved]

NARRATIVE: CASE EVENT DATE: 20151129
